FAERS Safety Report 16062801 (Version 2)
Quarter: 2019Q3

REPORT INFORMATION
  Report Type: Spontaneous
  Country: GR (occurrence: GR)
  Receive Date: 20190312
  Receipt Date: 20190701
  Transmission Date: 20191004
  Serious: Yes (Life-Threatening, Hospitalization, Other)
  Sender: FDA-Public Use
  Company Number: GR-CERECOR, INC.-2019CER00037

PATIENT
  Age: 33 Year
  Sex: Female

DRUGS (2)
  1. LOW MOLECULAR WEIGHT HEPARIN [Concomitant]
     Active Substance: UNSPECIFIED INGREDIENT
     Indication: FACTOR V LEIDEN MUTATION
     Route: 065
  2. PREDNISOLONE. [Suspect]
     Active Substance: PREDNISOLONE
     Indication: PEMPHIGUS
     Dosage: UP TO 30 MG, 1X/DAY
     Route: 048

REACTIONS (3)
  - Premature delivery [Recovered/Resolved]
  - Uterine rupture [Recovered/Resolved]
  - Caesarean section [Recovered/Resolved]
